FAERS Safety Report 9711987 (Version 1)
Quarter: 2013Q4

REPORT INFORMATION
  Report Type: Spontaneous
  Country: US (occurrence: None)
  Receive Date: 20131125
  Receipt Date: 20131125
  Transmission Date: 20140711
  Serious: No
  Sender: FDA-Public Use
  Company Number: None

PATIENT
  Age: 34 Year
  Sex: Female
  Weight: 54.43 kg

DRUGS (1)
  1. SULPHAMETHOXAZOLE/TRIMETHOPRIM [Suspect]
     Indication: CYST
     Dosage: 20 ML, TWICE DAILY, TAKEN BY MOUTH
     Dates: start: 20131118, end: 20131122

REACTIONS (2)
  - Epistaxis [None]
  - Middle insomnia [None]
